FAERS Safety Report 4282380-3 (Version None)
Quarter: 2004Q1

REPORT INFORMATION
  Report Type: 
  Country: None (occurrence: None)
  Receive Date: 20040114
  Receipt Date: 20030604
  Transmission Date: 20041129
  Serious: Yes (Hospitalization)
  Sender: FDA-Public Use
  Company Number: PHEH2003US04671

PATIENT
  Age: 68 Year
  Sex: Female

DRUGS (9)
  1. SANDOSTATIN LAR [Suspect]
     Indication: CARCINOID TUMOUR
     Dosage: 40 MG, QMO
  2. INTERFERON (INTERFERON) [Concomitant]
  3. INTERFERON ALFA-2B (INTERFERON ALFA-2B) [Concomitant]
  4. PROCRIT (ERYTHROPOIETIN) [Concomitant]
  5. CIPROFLOXACIN [Concomitant]
  6. DIFLUCAN [Concomitant]
  7. PANTOPRAZOLE [Concomitant]
  8. LOTENSIN [Concomitant]
  9. ELAVIL [Concomitant]

REACTIONS (1)
  - DIARRHOEA [None]
